FAERS Safety Report 6537502-8 (Version None)
Quarter: 2010Q1

REPORT INFORMATION
  Report Type: 
  Country: None (occurrence: None)
  Receive Date: 20100114
  Receipt Date: 20100106
  Transmission Date: 20100710
  Serious: Yes (Death, Life-Threatening, Other)
  Sender: FDA-Public Use
  Company Number: GB-ABBOTT-08P-167-0467351-00

PATIENT
  Age: 49 Year
  Sex: Male

DRUGS (16)
  1. RITONAVIR SOFT GELATIN CAPSULES [Suspect]
     Indication: HIV INFECTION
     Dates: start: 20071024, end: 20080526
  2. RITONAVIR SOFT GELATIN CAPSULES [Suspect]
     Dates: start: 20080617, end: 20080623
  3. ETRAVIRINE [Suspect]
     Indication: HIV INFECTION
     Dates: start: 20071024, end: 20080526
  4. ETRAVIRINE [Suspect]
     Dates: start: 20080617, end: 20080623
  5. MARAVIROC [Suspect]
     Indication: HIV INFECTION
     Dates: start: 20071024, end: 20080526
  6. MARAVIROC [Suspect]
     Dates: start: 20080617, end: 20080623
  7. PREZISTA [Suspect]
     Indication: HIV INFECTION
     Dates: start: 20071024, end: 20080526
  8. PREZISTA [Suspect]
     Dates: start: 20080617, end: 20080623
  9. KIVEXA [Suspect]
     Indication: HIV INFECTION
     Dates: start: 20071024, end: 20080526
  10. KIVEXA [Suspect]
     Dates: start: 20080617, end: 20080623
  11. LISINOPRIL [Concomitant]
     Indication: HYPERTENSION
  12. VALPROATE SODIUM [Concomitant]
     Indication: DRUG USE FOR UNKNOWN INDICATION
  13. VALACYCLOVIR HCL [Concomitant]
     Indication: HERPES VIRUS INFECTION
  14. DIPROBASE [Concomitant]
     Indication: DRUG USE FOR UNKNOWN INDICATION
  15. OILATUM [Concomitant]
     Indication: DRUG USE FOR UNKNOWN INDICATION
  16. BETNOVATE [Concomitant]
     Indication: DRUG USE FOR UNKNOWN INDICATION

REACTIONS (3)
  - GENERAL PHYSICAL HEALTH DETERIORATION [None]
  - INTESTINAL PERFORATION [None]
  - SEPSIS [None]
